FAERS Safety Report 8593848 (Version 2)
Quarter: 2012Q4

REPORT INFORMATION
  Report Type: Report from Study
  Country: US (occurrence: US)
  Receive Date: 20120604
  Receipt Date: 20120906
  Transmission Date: 20130627
  Serious: Yes (Hospitalization)
  Sender: FDA-Public Use
  Company Number: US-UCBSA-029759

PATIENT
  Age: 53 Year
  Sex: Female
  Weight: 68 kg

DRUGS (14)
  1. CIMZIA [Suspect]
     Indication: CROHN^S DISEASE
     Route: 058
     Dates: start: 20100930
  2. CYANOCOBALAMIN [Concomitant]
     Dosage: 1 mL INTO  30 ml MUSCLE
     Dates: start: 20100120
  3. ADVIL [Concomitant]
     Route: 048
  4. WELLBUTRINE [Concomitant]
     Route: 048
     Dates: end: 20110303
  5. AMBIEN [Concomitant]
     Route: 048
  6. LEXAPRO [Concomitant]
     Route: 048
  7. LEVOXYL [Concomitant]
     Dosage: 75 mcg TABLET
     Route: 048
     Dates: start: 20100820, end: 20110216
  8. PROTONIX [Concomitant]
     Route: 048
     Dates: start: 20100129
  9. PHENERGAN [Concomitant]
     Indication: NAUSEA
     Dosage: ONE TABLET EVERY 4-6 HOURS AS NEEDED
     Route: 048
     Dates: start: 20071005
  10. HUMIRA [Concomitant]
  11. TORADOL [Concomitant]
     Dosage: UNKNOWN
  12. OMNIPAQUE [Concomitant]
     Dosage: 350 MG/ML
  13. SODIUM PHOSPHATE [Concomitant]
     Dosage: 18 MMOL IVPB
  14. POTASSIUM PHOSPHATE [Concomitant]
     Dosage: IVP, 12 MM 35 OL IVPB

REACTIONS (2)
  - Pneumonia [Recovered/Resolved]
  - Abdominal abscess [Recovered/Resolved]
